FAERS Safety Report 17121630 (Version 3)
Quarter: 2020Q3

REPORT INFORMATION
  Report Type: Spontaneous
  Country: US (occurrence: US)
  Receive Date: 20191206
  Receipt Date: 20200826
  Transmission Date: 20201102
  Serious: Yes (Other)
  Sender: FDA-Public Use
  Company Number: US-GILEAD-2019-0440929

PATIENT
  Sex: Male

DRUGS (3)
  1. ATRIPLA [Suspect]
     Active Substance: EFAVIRENZ\EMTRICITABINE\TENOFOVIR DISOPROXIL FUMARATE
     Indication: HIV INFECTION
     Dosage: UNK
     Route: 048
     Dates: start: 200806, end: 20161107
  2. DESCOVY [Concomitant]
     Active Substance: EMTRICITABINE\TENOFOVIR ALAFENAMIDE FUMARATE
  3. BIKTARVY [Concomitant]
     Active Substance: BICTEGRAVIR SODIUM\EMTRICITABINE\TENOFOVIR ALAFENAMIDE FUMARATE

REACTIONS (11)
  - Prosthesis implantation [Unknown]
  - Bone density decreased [Not Recovered/Not Resolved]
  - Spinal corpectomy [Unknown]
  - Pain [Unknown]
  - Emotional distress [Unknown]
  - Anhedonia [Unknown]
  - Economic problem [Unknown]
  - Hip arthroplasty [Unknown]
  - Anxiety [Unknown]
  - Neck surgery [Unknown]
  - Tooth extraction [Unknown]

NARRATIVE: CASE EVENT DATE: 2010
